FAERS Safety Report 6582574-8 (Version None)
Quarter: 2010Q1

REPORT INFORMATION
  Report Type: 
  Country: None (occurrence: None)
  Receive Date: 20100203
  Receipt Date: 20100121
  Transmission Date: 20100710
  Serious: Yes (Other)
  Sender: FDA-Public Use
  Company Number: 239257K09USA

PATIENT
  Age: 40 Year
  Sex: Female

DRUGS (1)
  1. REBIF [Suspect]
     Indication: MULTIPLE SCLEROSIS
     Dosage: 44 MCG, 3 IN 1 WEEKS, SUBCUTANEOUS
     Route: 058
     Dates: start: 20071110

REACTIONS (5)
  - ARTHRALGIA [None]
  - ARTHRITIS [None]
  - HEMIPLEGIA [None]
  - PAIN IN EXTREMITY [None]
  - PERONEAL NERVE PALSY [None]
